FAERS Safety Report 25396936 (Version 1)
Quarter: 2025Q2

REPORT INFORMATION
  Report Type: Spontaneous
  Country: US (occurrence: US)
  Receive Date: 20250604
  Receipt Date: 20250604
  Transmission Date: 20250716
  Serious: Yes (Other)
  Sender: NOVARTIS
  Company Number: US-002147023-NVSC2025US086949

PATIENT
  Sex: Female

DRUGS (1)
  1. COSENTYX [Suspect]
     Active Substance: SECUKINUMAB
     Indication: Hidradenitis
     Route: 065

REACTIONS (9)
  - Immunosuppression [Unknown]
  - Bronchitis [Unknown]
  - Axillary mass [Unknown]
  - Drug hypersensitivity [Unknown]
  - Arthralgia [Unknown]
  - Road traffic accident [Unknown]
  - Fatigue [Unknown]
  - Contusion [Unknown]
  - Bone pain [Unknown]
